FAERS Safety Report 5279796-5 (Version None)
Quarter: 2007Q1

REPORT INFORMATION
  Report Type: 
  Country: None (occurrence: None)
  Receive Date: 20061220
  Receipt Date: 20060417
  Transmission Date: 20070707
  Serious: Yes (Other)
  Sender: FDA-Public Use
  Company Number: PHEH2005US09578

PATIENT
  Age: 59 Year
  Sex: Female

DRUGS (8)
  1. AREDIA [Suspect]
     Indication: METASTASES TO BONE
     Dosage: QMO, INTRAVENOUS
     Route: 042
     Dates: start: 19991201, end: 20050201
  2. ZOMETA [Suspect]
     Indication: METASTASES TO BONE
     Dosage: QMO
     Dates: start: 20050201
  3. KEPPRA [Suspect]
     Indication: PARTIAL SEIZURES
     Dosage: SEE IMAGE
     Dates: start: 20040101, end: 20050401
  4. KEPPRA [Suspect]
     Indication: PARTIAL SEIZURES
     Dosage: SEE IMAGE
     Dates: start: 20050401
  5. KEPPRA [Suspect]
     Indication: PARTIAL SEIZURES
     Dosage: SEE IMAGE
     Dates: start: 20050822
  6. HERCEPTIN [Suspect]
  7. TEGRETOL [Concomitant]
  8. METOPROLOL TARTRATE [Concomitant]

REACTIONS (15)
  - BRAIN TUMOUR OPERATION [None]
  - DIZZINESS [None]
  - DRUG INTERACTION [None]
  - HEMIPLEGIA [None]
  - HYPOAESTHESIA [None]
  - INFLUENZA LIKE ILLNESS [None]
  - METASTASES TO CENTRAL NERVOUS SYSTEM [None]
  - MUSCLE TWITCHING [None]
  - MYALGIA [None]
  - NAUSEA [None]
  - PARTIAL SEIZURES [None]
  - PRURITUS GENERALISED [None]
  - PYREXIA [None]
  - RADIOTHERAPY TO BRAIN [None]
  - VERTIGO [None]
